FAERS Safety Report 12188477 (Version 4)
Quarter: 2016Q3

REPORT INFORMATION
  Report Type: Spontaneous
  Country: US (occurrence: US)
  Receive Date: 20160317
  Receipt Date: 20160909
  Transmission Date: 20161109
  Serious: Yes (Other)
  Sender: FDA-Public Use
  Company Number: US-BIOMARINAP-US-2016-109196

PATIENT
  Age: 24 Year
  Sex: Female
  Weight: 59 kg

DRUGS (4)
  1. KUVAN [Suspect]
     Active Substance: SAPROPTERIN DIHYDROCHLORIDE
     Indication: PHENYLKETONURIA
  2. KUVAN [Suspect]
     Active Substance: SAPROPTERIN DIHYDROCHLORIDE
     Indication: TETRAHYDROBIOPTERIN DEFICIENCY
  3. CARBIDOPA. [Concomitant]
     Active Substance: CARBIDOPA
     Indication: DYSTONIA
     Dosage: UNK
  4. KUVAN [Suspect]
     Active Substance: SAPROPTERIN DIHYDROCHLORIDE
     Indication: DYSTONIA
     Dosage: 1800 MG, QD
     Route: 048
     Dates: start: 2013

REACTIONS (2)
  - Thyroid mass [Unknown]
  - Local swelling [Unknown]

NARRATIVE: CASE EVENT DATE: 20160307
